FAERS Safety Report 6248662-0 (Version None)
Quarter: 2009Q2

REPORT INFORMATION
  Report Type: 
  Country: None (occurrence: None)
  Receive Date: 20090624
  Receipt Date: 20090624
  Transmission Date: 20091009
  Serious: No
  Sender: FDA-Public Use
  Company Number: None

PATIENT
  Age: 74 Year
  Sex: Female

DRUGS (1)
  1. NALOXONE [Suspect]
     Indication: SEDATION
     Dosage: 0.4 MG IV X 1
     Route: 042
     Dates: start: 20090505

REACTIONS (2)
  - CONVULSION [None]
  - HYPERTENSION [None]
